FAERS Safety Report 16749764 (Version 2)
Quarter: 2019Q3

REPORT INFORMATION
  Report Type: Spontaneous
  Country: JP (occurrence: JP)
  Receive Date: 20190828
  Receipt Date: 20190902
  Transmission Date: 20191005
  Serious: Yes (Other)
  Sender: FDA-Public Use
  Company Number: PHJP2019JP010829

PATIENT
  Sex: Female

DRUGS (1)
  1. DICLOFENAC [Suspect]
     Active Substance: DICLOFENAC
     Indication: TENDONITIS
     Dosage: 50 MG, UNK
     Route: 054

REACTIONS (6)
  - Large intestinal ulcer [Recovered/Resolved]
  - Pyrexia [Recovering/Resolving]
  - Inflammation [Recovering/Resolving]
  - Peptic ulcer [Unknown]
  - Gastrointestinal wall thickening [Unknown]
  - Malaise [Unknown]
